FAERS Safety Report 6988504-9 (Version None)
Quarter: 2010Q3

REPORT INFORMATION
  Report Type: 
  Country: None (occurrence: None)
  Receive Date: 20100916
  Receipt Date: 20100909
  Transmission Date: 20110219
  Serious: Yes (Hospitalization)
  Sender: FDA-Public Use
  Company Number: JP-BAYER-201014607BYL

PATIENT
  Age: 67 Year
  Sex: Male
  Weight: 58 kg

DRUGS (5)
  1. NEXAVAR [Suspect]
     Indication: HEPATIC NEOPLASM MALIGNANT
     Dosage: UNIT DOSE: 200 MG
     Route: 048
     Dates: start: 20100817, end: 20100909
  2. KERATINAMIN [Concomitant]
     Route: 061
     Dates: start: 20100819
  3. LASIX [Concomitant]
     Route: 048
     Dates: start: 20100820
  4. SPIRONOLACTONE [Concomitant]
     Route: 048
     Dates: start: 20100820
  5. OMEPRAL [Concomitant]
     Route: 048
     Dates: start: 20100816

REACTIONS (1)
  - OPEN WOUND [None]
